FAERS Safety Report 15749679 (Version 2)
Quarter: 2019Q3

REPORT INFORMATION
  Report Type: Spontaneous
  Country: AU (occurrence: AU)
  Receive Date: 20181221
  Receipt Date: 20190930
  Transmission Date: 20191004
  Serious: Yes (Other)
  Sender: FDA-Public Use
  Company Number: AU-GW PHARMA-201812AUGW0643

PATIENT

DRUGS (13)
  1. PAXAM [CLONAZEPAM] [Concomitant]
     Active Substance: CLONAZEPAM
     Indication: EPILEPSY
     Dosage: 1 MILLIGRAM, QD (QAM)
     Route: 048
     Dates: start: 20151202
  2. PAXAM [CLONAZEPAM] [Concomitant]
     Active Substance: CLONAZEPAM
     Dosage: 1.5 MILLIGRAM, QD (QPM)
     Route: 048
     Dates: start: 20170314
  3. EPIDIOLEX [Suspect]
     Active Substance: CANNABIDIOL
     Indication: TUBEROUS SCLEROSIS COMPLEX
     Dosage: 26 MG/KG/DAY, 750 MILLIGRAM, BID
     Route: 065
     Dates: start: 20170714
  4. PERAMPANEL [Concomitant]
     Active Substance: PERAMPANEL
     Indication: EPILEPSY
     Dosage: 2.0 MILLIGRAM, QD
     Route: 048
     Dates: start: 20160301
  5. SODIUM VALPROATE [Concomitant]
     Active Substance: VALPROATE SODIUM
     Indication: EPILEPSY
     Dosage: 1700 MILLIGRAM, QD (700 MG QAM AND 1000 MG QPM)
     Route: 048
     Dates: start: 20151202
  6. LACOSAMIDE. [Concomitant]
     Active Substance: LACOSAMIDE
     Indication: EPILEPSY
     Dosage: 300 MILLIGRAM, QD (200 MG QAM AND 100 MG QPM)
     Route: 048
     Dates: start: 20151202
  7. PANADOL [Concomitant]
     Active Substance: ACETAMINOPHEN
     Indication: SCOLIOSIS
     Dosage: 1330 MILLIGRAM, BID
     Route: 048
     Dates: start: 20151202
  8. CIPROFLOXACIN. [Concomitant]
     Active Substance: CIPROFLOXACIN
     Dosage: 500 MILLIGRAM, BID
     Route: 048
     Dates: start: 20170920, end: 20171003
  9. MIDAZOLAM [Concomitant]
     Active Substance: MIDAZOLAM HYDROCHLORIDE
     Indication: PRODUCT USED FOR UNKNOWN INDICATION
     Dosage: 5 MILLIGRAM, PRN
     Route: 002
     Dates: start: 2015
  10. CARBAMAZEPINE. [Concomitant]
     Active Substance: CARBAMAZEPINE
     Indication: EPILEPSY
     Dosage: 600 MILLIGRAM, QD (400 MG QAM AND 200 MG QPM)
     Route: 048
     Dates: start: 20151202
  11. BROMHEXINE [Concomitant]
     Active Substance: BROMHEXINE
     Indication: UPPER RESPIRATORY TRACT INFECTION
     Dosage: 10 MILLILITER, BID
     Route: 048
     Dates: start: 20180828, end: 20180829
  12. CIPROFLOXACIN. [Concomitant]
     Active Substance: CIPROFLOXACIN
     Indication: URINARY TRACT INFECTION
     Dosage: 500 MILLIGRAM, BID
     Route: 048
     Dates: start: 20170829, end: 20170904
  13. LOPERAMIDE [Concomitant]
     Active Substance: LOPERAMIDE
     Indication: DIARRHOEA
     Dosage: 2 MILLIGRAM, PRN
     Route: 048
     Dates: start: 20170813

REACTIONS (5)
  - Product quality issue [Unknown]
  - Seizure [Recovered/Resolved]
  - Quality of life decreased [Recovered/Resolved]
  - Epilepsy [Recovered/Resolved]
  - Urinary tract infection [Recovered/Resolved]

NARRATIVE: CASE EVENT DATE: 20181118
